FAERS Safety Report 9649262 (Version 3)
Quarter: 2013Q4

REPORT INFORMATION
  Report Type: Spontaneous
  Country: US (occurrence: US)
  Receive Date: 20131028
  Receipt Date: 20131204
  Transmission Date: 20140711
  Serious: Yes (Hospitalization)
  Sender: FDA-Public Use
  Company Number: US-GLAXOSMITHKLINE-A1047190A

PATIENT
  Age: 50 Year
  Sex: Female

DRUGS (2)
  1. FLOLAN [Suspect]
     Indication: PULMONARY ARTERIAL HYPERTENSION
     Dosage: 76NGKM CONTINUOUS
     Route: 042
     Dates: start: 20060520
  2. COUMADIN [Concomitant]

REACTIONS (3)
  - Investigation [Unknown]
  - Lung infection [Unknown]
  - Device related infection [Unknown]
